FAERS Safety Report 22366411 (Version 2)
Quarter: 2023Q2

REPORT INFORMATION
  Report Type: Spontaneous
  Country: PL (occurrence: PL)
  Receive Date: 20230525
  Receipt Date: 20230531
  Transmission Date: 20230722
  Serious: Yes (Hospitalization, Other)
  Sender: FDA-Public Use
  Company Number: PL-JNJFOC-20230547377

PATIENT
  Age: 49 Year
  Sex: Female

DRUGS (3)
  1. ACETAMINOPHEN [Interacting]
     Active Substance: ACETAMINOPHEN
     Indication: Depression
     Dosage: 1000 MILLIGRAM
     Route: 065
  2. DIPHENHYDRAMINE HYDROCHLORIDE [Interacting]
     Active Substance: DIPHENHYDRAMINE HYDROCHLORIDE
     Indication: Depression
     Dosage: 1000 MILLIGRAM
     Route: 065
  3. PAROXETINE [Interacting]
     Active Substance: PAROXETINE
     Indication: Depression
     Dosage: 40 MILLIGRAM/DAY
     Route: 065

REACTIONS (3)
  - Drug interaction [Unknown]
  - Pain [Unknown]
  - Palpitations [Unknown]
